FAERS Safety Report 9263849 (Version 1)
Quarter: 2013Q2

REPORT INFORMATION
  Report Type: Spontaneous
  Country: US (occurrence: US)
  Receive Date: 20130430
  Receipt Date: 20130430
  Transmission Date: 20140414
  Serious: Yes (Death, Hospitalization, Other)
  Sender: FDA-Public Use
  Company Number: US-ROCHE-1215753

PATIENT
  Age: 61 Year
  Sex: Female
  Weight: 59 kg

DRUGS (8)
  1. RITUXIMAB [Suspect]
     Indication: RHEUMATOID ARTHRITIS
     Route: 042
     Dates: end: 201109
  2. ENBREL [Suspect]
     Indication: RHEUMATOID ARTHRITIS
     Route: 065
     Dates: start: 2002, end: 2011
  3. HUMIRA [Suspect]
     Indication: RHEUMATOID ARTHRITIS
     Route: 058
     Dates: start: 201112, end: 20120402
  4. LEVOTHYROXINE [Suspect]
     Indication: HYPOTHYROIDISM
     Dosage: DAILY FOR YEARS
     Route: 065
  5. METHOTREXATE [Suspect]
     Indication: RHEUMATOID ARTHRITIS
     Route: 048
     Dates: end: 20120403
  6. MEFENAMIC ACID [Suspect]
     Indication: RHEUMATOID ARTHRITIS
     Dosage: DAILY AS REQUIRED
     Route: 065
  7. ALENDRONATE SODIUM [Suspect]
     Indication: OSTEOPOROSIS
     Dosage: FOR YEARS
     Route: 065
  8. FOLIC ACID [Suspect]
     Indication: RHEUMATOID ARTHRITIS
     Dosage: FOR YEARS
     Route: 065

REACTIONS (5)
  - Hepatic failure [Fatal]
  - Hepatic enzyme increased [Fatal]
  - Acute hepatitis B [Fatal]
  - Influenza like illness [Unknown]
  - Treatment failure [Recovered/Resolved]
